FAERS Safety Report 10189371 (Version 1)
Quarter: 2014Q2

REPORT INFORMATION
  Report Type: Spontaneous
  Country: US (occurrence: None)
  Receive Date: 20140521
  Receipt Date: 20140521
  Transmission Date: 20141212
  Serious: Yes (Other)
  Sender: FDA-Public Use
  Company Number: None

PATIENT
  Age: 20 Year
  Sex: Female

DRUGS (1)
  1. XARELTO 20 MG [Suspect]
     Indication: DEEP VEIN THROMBOSIS
     Dosage: 1 PILL
     Route: 048
     Dates: start: 20140417, end: 20140505

REACTIONS (18)
  - Constipation [None]
  - Nausea [None]
  - Malaise [None]
  - Headache [None]
  - Asthenia [None]
  - Dizziness [None]
  - Fatigue [None]
  - Depressed level of consciousness [None]
  - Fatigue [None]
  - Palpitations [None]
  - Hyperhidrosis [None]
  - Hyperventilation [None]
  - Paraesthesia [None]
  - Feeling cold [None]
  - Cold sweat [None]
  - Muscular weakness [None]
  - Blood pressure increased [None]
  - Gastric disorder [None]
